FAERS Safety Report 18339415 (Version 1)
Quarter: 2020Q4

REPORT INFORMATION
  Report Type: Spontaneous
  Country: US (occurrence: US)
  Receive Date: 20201002
  Receipt Date: 20201002
  Transmission Date: 20210113
  Serious: Yes (Hospitalization)
  Sender: FDA-Public Use
  Company Number: None

PATIENT
  Age: 65 Year
  Sex: Female

DRUGS (12)
  1. ALPRAZOLAM. [Concomitant]
     Active Substance: ALPRAZOLAM
  2. EMGALITY [Concomitant]
     Active Substance: GALCANEZUMAB-GNLM
  3. ASPIRIN. [Concomitant]
     Active Substance: ASPIRIN
  4. CLONAZEPAM. [Concomitant]
     Active Substance: CLONAZEPAM
  5. NURTEC ODT [Concomitant]
     Active Substance: RIMEGEPANT SULFATE
  6. AIMOVIG [Suspect]
     Active Substance: ERENUMAB-AOOE
     Indication: MIGRAINE
     Dosage: ?          OTHER FREQUENCY:EVERY 30 DAYS;?
     Route: 058
  7. ONDANSETRON [Concomitant]
     Active Substance: ONDANSETRON
  8. METOCLOPRAM [Concomitant]
     Active Substance: METOCLOPRAMIDE
  9. MELOXICAM. [Concomitant]
     Active Substance: MELOXICAM
  10. TRAMADOL. [Concomitant]
     Active Substance: TRAMADOL
  11. QUININE SULF. [Concomitant]
  12. OXYCODONE [Concomitant]
     Active Substance: OXYCODONE

REACTIONS (1)
  - Emergency care [None]

NARRATIVE: CASE EVENT DATE: 20200930
